FAERS Safety Report 5196672-7 (Version None)
Quarter: 2007Q1

REPORT INFORMATION
  Report Type: 
  Country: None (occurrence: None)
  Receive Date: 20070103
  Receipt Date: 20061226
  Transmission Date: 20070707
  Serious: Yes (Other)
  Sender: FDA-Public Use
  Company Number: PHBS2006BR20005

PATIENT
  Age: 12 Year
  Sex: Male
  Weight: 27 kg

DRUGS (2)
  1. TEGRETOL [Suspect]
     Indication: PARALYSIS
     Dosage: 4 ML, BID
     Route: 048
     Dates: start: 20020101
  2. TRILEPTAL [Suspect]
     Dosage: 7 ML, BID
     Route: 048
     Dates: start: 20020101

REACTIONS (5)
  - CONVULSION [None]
  - EYE SWELLING [None]
  - IRRITABILITY [None]
  - NERVOUSNESS [None]
  - RHINITIS ALLERGIC [None]
